FAERS Safety Report 7415684-3 (Version None)
Quarter: 2011Q2

REPORT INFORMATION
  Report Type: 
  Country: None (occurrence: None)
  Receive Date: 20110414
  Receipt Date: 20110411
  Transmission Date: 20111010
  Serious: Yes (Hospitalization, Other)
  Sender: FDA-Public Use
  Company Number: CH-MERCK-1103USA03226

PATIENT
  Age: 86 Year
  Sex: Female

DRUGS (7)
  1. DURAGESIC-100 [Suspect]
     Indication: BACK PAIN
     Route: 061
     Dates: start: 20070101, end: 20110117
  2. MOTILIUM [Concomitant]
     Route: 048
     Dates: start: 20101201, end: 20110119
  3. REMERON [Suspect]
     Route: 065
     Dates: start: 20110107, end: 20110119
  4. JANUVIA [Suspect]
     Indication: TYPE 2 DIABETES MELLITUS
     Route: 048
     Dates: start: 20100901, end: 20110119
  5. TOLTERODINE TARTRATE [Suspect]
     Route: 065
     Dates: start: 20100901, end: 20110119
  6. ZOLPIDEM TARTRATE [Concomitant]
     Route: 048
  7. DAFALGAN [Concomitant]
     Route: 048
     Dates: end: 20110121

REACTIONS (4)
  - NAUSEA [None]
  - VOMITING [None]
  - ENTEROCOCCAL SEPSIS [None]
  - CONSTIPATION [None]
